FAERS Safety Report 9353987 (Version 3)
Quarter: 2013Q3

REPORT INFORMATION
  Report Type: Spontaneous
  Country: US (occurrence: US)
  Receive Date: 20130618
  Receipt Date: 20130904
  Transmission Date: 20140515
  Serious: Yes (Hospitalization, Other)
  Sender: FDA-Public Use
  Company Number: US-GILEAD-2013-0077105

PATIENT
  Age: 40 Year
  Sex: Female

DRUGS (2)
  1. LETAIRIS [Suspect]
     Indication: PULMONARY HYPERTENSION
     Dosage: 10 MG, QD
     Dates: start: 20110930, end: 20130720
  2. ADCIRCA [Concomitant]

REACTIONS (5)
  - Chest pain [Unknown]
  - Condition aggravated [Unknown]
  - Mitral valve calcification [Unknown]
  - Mitral valve repair [Unknown]
  - Dyspnoea [Unknown]
